FAERS Safety Report 7384478-X (Version None)
Quarter: 2011Q1

REPORT INFORMATION
  Report Type: 
  Country: None (occurrence: None)
  Receive Date: 20110330
  Receipt Date: 20110317
  Transmission Date: 20110831
  Serious: Yes (Hospitalization)
  Sender: FDA-Public Use
  Company Number: TR-WATSON-2011-03920

PATIENT
  Age: 35 Year
  Sex: Male

DRUGS (2)
  1. RISPERIDONE [Suspect]
     Indication: SCHIZOPHRENIA
     Dosage: 4 MG, DAILY
     Route: 048
  2. LITHIUM [Suspect]
     Indication: SCHIZOPHRENIA
     Dosage: 450 MG, BID
     Route: 048

REACTIONS (2)
  - DRUG INTERACTION [None]
  - NEUROLEPTIC MALIGNANT SYNDROME [None]
